FAERS Safety Report 4909152-8 (Version None)
Quarter: 2006Q1

REPORT INFORMATION
  Report Type: 
  Country: None (occurrence: None)
  Receive Date: 20060209
  Receipt Date: 20060209
  Transmission Date: 20060701
  Serious: Yes (Other)
  Sender: FDA-Public Use
  Company Number: None

PATIENT
  Age: 10 Month
  Sex: Male
  Weight: 9.0719 kg

DRUGS (1)
  1. ELIDEL [Suspect]
     Indication: ECZEMA
     Dosage: APPLY  TWICE DAILY  TOP
     Route: 061
     Dates: start: 20050901, end: 20051201

REACTIONS (1)
  - ACUTE LYMPHOCYTIC LEUKAEMIA [None]
